FAERS Safety Report 22052418 (Version 2)
Quarter: 2023Q2

REPORT INFORMATION
  Report Type: Spontaneous
  Country: EC (occurrence: EC)
  Receive Date: 20230302
  Receipt Date: 20230425
  Transmission Date: 20230721
  Serious: Yes (Other)
  Sender: FDA-Public Use
  Company Number: EC-PFIZER INC-PV202300036933

PATIENT
  Age: 50 Year
  Sex: Female

DRUGS (1)
  1. ENBREL [Suspect]
     Active Substance: ETANERCEPT
     Indication: Product used for unknown indication
     Dosage: UNK
     Route: 058

REACTIONS (3)
  - Hip arthroplasty [Unknown]
  - Arthralgia [Recovering/Resolving]
  - Joint swelling [Recovering/Resolving]

NARRATIVE: CASE EVENT DATE: 20230101
